FAERS Safety Report 6759626-2 (Version None)
Quarter: 2010Q2

REPORT INFORMATION
  Report Type: 
  Country: None (occurrence: None)
  Receive Date: 20100608
  Receipt Date: 20100528
  Transmission Date: 20101027
  Serious: Yes (Disabling)
  Sender: FDA-Public Use
  Company Number: BR-BIOGENIDEC-2010BI018166

PATIENT
  Age: 22 Year
  Sex: Male

DRUGS (1)
  1. TYSABRI [Suspect]
     Indication: SECONDARY PROGRESSIVE MULTIPLE SCLEROSIS
     Route: 042
     Dates: start: 20090901

REACTIONS (4)
  - ABASIA [None]
  - MULTIPLE SCLEROSIS [None]
  - PARAESTHESIA [None]
  - TREMOR [None]
